FAERS Safety Report 9523834 (Version 1)
Quarter: 2013Q3

REPORT INFORMATION
  Report Type: Spontaneous
  Country: US (occurrence: None)
  Receive Date: 20130912
  Receipt Date: 20130912
  Transmission Date: 20140515
  Serious: Yes (Other)
  Sender: FDA-Public Use
  Company Number: 001299792A

PATIENT
  Age: 15 Year
  Sex: Female

DRUGS (5)
  1. PROACTIV SOLUTION RENEWING CLEANSER [Suspect]
     Indication: ACNE
     Dosage: DERMAL
     Dates: start: 20120405, end: 20120704
  2. PROACTIV SOLUTION REPAIRING TREATMENT [Suspect]
     Indication: ACNE
     Dosage: DERMAL
     Dates: start: 20120405, end: 20120704
  3. PROACTIV SOLUTION DEEP CLEANSING WASH [Suspect]
     Indication: ACNE
     Dosage: DERMAL
     Dates: start: 20120704
  4. PROACTIV SPF 15 MOISTURIZER [Suspect]
     Indication: ACNE
     Dosage: DERMAL
     Dates: start: 20120405, end: 20120704
  5. PROACTIV SOLUTION DARK SPOT CORRECTOR [Suspect]
     Indication: ACNE
     Dosage: DERMAL
     Dates: start: 20120405

REACTIONS (2)
  - Swelling face [None]
  - Urticaria [None]
